FAERS Safety Report 24183673 (Version 1)
Quarter: 2024Q3

REPORT INFORMATION
  Report Type: Spontaneous
  Country: CN (occurrence: CN)
  Receive Date: 20240807
  Receipt Date: 20240807
  Transmission Date: 20241017
  Serious: Yes (Other)
  Sender: PFIZER
  Company Number: CN-PFIZER INC-PV202400100806

PATIENT
  Age: 74 Year
  Sex: Male
  Weight: 62 kg

DRUGS (17)
  1. IRINOTECAN HYDROCHLORIDE [Suspect]
     Active Substance: IRINOTECAN HYDROCHLORIDE
     Indication: Colon cancer
     Dosage: 250 MG, ONCE EVERY 2 WEEKS
     Dates: start: 20221201
  2. IRINOTECAN HYDROCHLORIDE [Suspect]
     Active Substance: IRINOTECAN HYDROCHLORIDE
     Dosage: 250 MG, ONCE EVERY 2 WEEKS
     Dates: start: 20230114
  3. IRINOTECAN HYDROCHLORIDE [Suspect]
     Active Substance: IRINOTECAN HYDROCHLORIDE
     Dosage: 250 MG, ONCE EVERY 2 WEEKS
     Dates: start: 20230220
  4. AMLODIPINE [Concomitant]
     Active Substance: AMLODIPINE BESYLATE
     Dosage: UNK
  5. ATORVASTATIN [Concomitant]
     Active Substance: ATORVASTATIN
     Dosage: UNK
  6. CETUXIMAB [Concomitant]
     Active Substance: CETUXIMAB
     Indication: Colon cancer
     Dosage: 700 MG, D1, ONCE EVERY 2 WEEKS
     Dates: start: 20221201
  7. CETUXIMAB [Concomitant]
     Active Substance: CETUXIMAB
     Dosage: 700 MG, D1, ONCE EVERY 2 WEEKS
     Dates: start: 20230114
  8. CETUXIMAB [Concomitant]
     Active Substance: CETUXIMAB
     Dosage: 700 MG, D1, ONCE EVERY 2 WEEKS
     Dates: start: 20230220
  9. FLUOROURACIL [Concomitant]
     Active Substance: FLUOROURACIL
     Indication: Colon cancer
     Dosage: 3.75 G, ONCE EVERY 2 WEEKS
     Dates: start: 20221201
  10. FLUOROURACIL [Concomitant]
     Active Substance: FLUOROURACIL
     Dosage: 3.75 G, ONCE EVERY 2 WEEKS
     Dates: start: 20230114
  11. FLUOROURACIL [Concomitant]
     Active Substance: FLUOROURACIL
     Dosage: 3.75 G, ONCE EVERY 2 WEEKS
     Dates: start: 20230220
  12. GLIMEPIRIDE [Concomitant]
     Active Substance: GLIMEPIRIDE
     Dosage: UNK
  13. IRBESARTAN [Concomitant]
     Active Substance: IRBESARTAN
     Dosage: UNK
  14. LEUCOVORIN CALCIUM [Concomitant]
     Active Substance: LEUCOVORIN CALCIUM
     Indication: Colon cancer
     Dosage: 0.6 G, ONCE EVERY 2 WEEKS
     Dates: start: 20221201
  15. LEUCOVORIN CALCIUM [Concomitant]
     Active Substance: LEUCOVORIN CALCIUM
     Dosage: 0.6 G, ONCE EVERY 2 WEEKS
     Dates: start: 20230114
  16. LEUCOVORIN CALCIUM [Concomitant]
     Active Substance: LEUCOVORIN CALCIUM
     Dosage: 0.6 G, ONCE EVERY 2 WEEKS
     Dates: start: 20230220
  17. METFORMIN [Concomitant]
     Active Substance: METFORMIN HYDROCHLORIDE
     Dosage: UNK

REACTIONS (2)
  - Drug-induced liver injury [Recovering/Resolving]
  - Cholestatic liver injury [Recovering/Resolving]
